FAERS Safety Report 5308116-2 (Version None)
Quarter: 2007Q1

REPORT INFORMATION
  Report Type: 
  Country: None (occurrence: None)
  Receive Date: 20070201
  Receipt Date: 20061227
  Transmission Date: 20070707
  Serious: No
  Sender: FDA-Public Use
  Company Number: 2006PV027465

PATIENT
  Age: 71 Year
  Sex: Female

DRUGS (3)
  1. BYETTA [Suspect]
     Indication: DIABETES MELLITUS
     Dosage: SEE IMAGE
     Route: 058
     Dates: start: 20060901, end: 20060901
  2. BYETTA [Suspect]
     Indication: DIABETES MELLITUS
     Dosage: SEE IMAGE
     Route: 058
     Dates: start: 20060901
  3. LANTUS [Concomitant]

REACTIONS (4)
  - ANXIETY [None]
  - BLOOD GLUCOSE DECREASED [None]
  - BLOOD GLUCOSE INCREASED [None]
  - MEDICATION ERROR [None]
